FAERS Safety Report 7352738-4 (Version None)
Quarter: 2011Q1

REPORT INFORMATION
  Report Type: 
  Country: None (occurrence: None)
  Receive Date: 20110310
  Receipt Date: 20110310
  Transmission Date: 20110831
  Serious: No
  Sender: FDA-Public Use
  Company Number: None

PATIENT
  Sex: Female

DRUGS (1)
  1. REMICADE [Suspect]
     Indication: RHEUMATOID ARTHRITIS
     Dosage: 200MG WEEK 0,2,4 IV
     Route: 042
     Dates: start: 20110302, end: 20110302

REACTIONS (4)
  - SWELLING FACE [None]
  - OROPHARYNGEAL PAIN [None]
  - DRY SKIN [None]
  - DYSPHONIA [None]
